FAERS Safety Report 8914306 (Version 1)
Quarter: 2012Q4

REPORT INFORMATION
  Report Type: 
  Country: US (occurrence: US)
  Receive Date: 20121119
  Receipt Date: 20121119
  Transmission Date: 20130627
  Serious: No
  Sender: FDA-Public Use
  Company Number: US-JNJFOC-20121012351

PATIENT
  Sex: Female

DRUGS (2)
  1. INVEGA [Suspect]
     Indication: DISSOCIATIVE DISORDER
     Dosage: 3mg and 1.5mg
     Route: 048
  2. INVEGA [Suspect]
     Indication: POST-TRAUMATIC STRESS DISORDER
     Dosage: 3mg and 1.5mg
     Route: 048

REACTIONS (2)
  - Tremor [Unknown]
  - Off label use [Unknown]
